FAERS Safety Report 13981587 (Version 1)
Quarter: 2017Q3

REPORT INFORMATION
  Report Type: Spontaneous
  Country: MX (occurrence: MX)
  Receive Date: 20170917
  Receipt Date: 20170917
  Transmission Date: 20171128
  Serious: No
  Sender: FDA-Public Use
  Company Number: None

PATIENT
  Age: 29 Year
  Sex: Male
  Weight: 70 kg

DRUGS (4)
  1. ADOPREN (IBUPROFENO) [Concomitant]
  2. KLARIX [Suspect]
     Active Substance: CLARITHROMYCIN
     Indication: PHARYNGITIS
     Dosage: ?          QUANTITY:1 TABLET(S);?EVERY 12 HOURS ORAL
     Route: 048
  3. KY6 [Concomitant]
  4. VITAMIN C [Concomitant]
     Active Substance: ASCORBIC ACID

REACTIONS (2)
  - Renal pain [None]
  - Dysgeusia [None]

NARRATIVE: CASE EVENT DATE: 20170917
